FAERS Safety Report 9195649 (Version 1)
Quarter: 2013Q1

REPORT INFORMATION
  Report Type: Spontaneous
  Country: US (occurrence: US)
  Receive Date: 20130328
  Receipt Date: 20130328
  Transmission Date: 20140127
  Serious: No
  Sender: FDA-Public Use
  Company Number: US-BIOGENIDEC-2013BI027467

PATIENT
  Sex: Female

DRUGS (1)
  1. TYSABRI [Suspect]
     Indication: MULTIPLE SCLEROSIS
     Route: 042
     Dates: start: 20061009, end: 20100312

REACTIONS (4)
  - Balance disorder [Recovered/Resolved]
  - Fall [Recovered/Resolved]
  - Amnesia [Recovered/Resolved]
  - Fatigue [Recovered/Resolved]
